FAERS Safety Report 12867132 (Version 3)
Quarter: 2016Q4

REPORT INFORMATION
  Report Type: Spontaneous
  Country: US (occurrence: US)
  Receive Date: 20161020
  Receipt Date: 20161123
  Transmission Date: 20170207
  Serious: Yes (Other)
  Sender: FDA-Public Use
  Company Number: US-JAZZ-2016-US-014981

PATIENT
  Sex: Male
  Weight: 77.98 kg

DRUGS (22)
  1. ECOTRIN EC [Concomitant]
  2. LANTUS [Concomitant]
     Active Substance: INSULIN GLARGINE
  3. HYDROCODONE BITARTRATE AND ACETAMINOPHEN [Concomitant]
     Active Substance: ACETAMINOPHEN\HYDROCODONE BITARTRATE
  4. METFORMIN HCL [Concomitant]
     Active Substance: METFORMIN HYDROCHLORIDE
  5. NOREL AD [Concomitant]
     Active Substance: ACETAMINOPHEN\CHLORPHENIRAMINE MALEATE\PHENYLEPHRINE HYDROCHLORIDE
  6. XYREM [Suspect]
     Active Substance: SODIUM OXYBATE
     Dosage: 4.5 G, FIRST DOSE
     Route: 048
     Dates: start: 201411
  7. XYREM [Suspect]
     Active Substance: SODIUM OXYBATE
     Dosage: 3 G, SECOND DOSE
     Route: 048
     Dates: start: 201411
  8. ASPIRIN. [Concomitant]
     Active Substance: ASPIRIN
  9. FIORICET [Concomitant]
     Active Substance: ACETAMINOPHEN\BUTALBITAL\CAFFEINE
  10. VITAMIN C [Concomitant]
     Active Substance: ASCORBIC ACID
  11. LINZESS [Concomitant]
     Active Substance: LINACLOTIDE
  12. LOVASTATIN. [Concomitant]
     Active Substance: LOVASTATIN
  13. VERAPAMIL [Concomitant]
     Active Substance: VERAPAMIL HYDROCHLORIDE
  14. XYREM [Suspect]
     Active Substance: SODIUM OXYBATE
     Indication: NARCOLEPSY
     Dosage: 3 G, BID
     Route: 048
     Dates: start: 201102, end: 2013
  15. TOPAMAX [Concomitant]
     Active Substance: TOPIRAMATE
  16. VITAMIN D3 [Concomitant]
     Active Substance: CHOLECALCIFEROL
  17. ALBUTEROL SULFATE. [Concomitant]
     Active Substance: ALBUTEROL SULFATE
  18. HUMULIN NOS [Concomitant]
     Active Substance: INSULIN HUMAN
  19. XYREM [Suspect]
     Active Substance: SODIUM OXYBATE
     Indication: SOMNOLENCE
     Dosage: 3 G, BID
     Route: 048
     Dates: start: 201405, end: 201411
  20. IRON [Suspect]
     Active Substance: IRON
     Indication: IRON DEFICIENCY
     Dosage: UNKNOWN DOSE
  21. ORPHENADRINE CITRATE. [Concomitant]
     Active Substance: ORPHENADRINE CITRATE
  22. MULTIVITAMINS [Concomitant]
     Active Substance: VITAMINS

REACTIONS (3)
  - Abdominal discomfort [Recovering/Resolving]
  - Blood iron decreased [Not Recovered/Not Resolved]
  - Drug abuse [Unknown]

NARRATIVE: CASE EVENT DATE: 2016
